FAERS Safety Report 5379172-0 (Version None)
Quarter: 2007Q3

REPORT INFORMATION
  Report Type: 
  Country: None (occurrence: None)
  Receive Date: 20070705
  Receipt Date: 20070628
  Transmission Date: 20080115
  Serious: Yes (Death)
  Sender: FDA-Public Use
  Company Number: US-PURDUE-USA_2007_0028078

PATIENT
  Age: 58 Year
  Sex: Female

DRUGS (6)
  1. OXYCONTIN [Suspect]
     Indication: DRUG USE FOR UNKNOWN INDICATION
     Dosage: 40 MG, TID
  2. LORTAB [Concomitant]
  3. RESTORIL [Concomitant]
  4. VALIUM [Concomitant]
  5. ATIVAN [Concomitant]
  6. SOMA [Concomitant]

REACTIONS (1)
  - SUDDEN DEATH [None]
